FAERS Safety Report 4455504-2 (Version None)
Quarter: 2004Q3

REPORT INFORMATION
  Report Type: 
  Country: None (occurrence: None)
  Receive Date: 20040917
  Receipt Date: 20040902
  Transmission Date: 20050211
  Serious: Yes (Hospitalization)
  Sender: FDA-Public Use
  Company Number: 8007203

PATIENT
  Age: 35 Year
  Sex: Male
  Weight: 99 kg

DRUGS (3)
  1. KEPPRA [Suspect]
     Indication: EPILEPSY
     Dosage: 2 G /D PO
     Route: 048
     Dates: start: 20030415, end: 20040401
  2. STILNOX [Concomitant]
  3. HAVLANE [Concomitant]

REACTIONS (3)
  - HEPATITIS [None]
  - SOMNOLENCE [None]
  - THROMBOCYTOPENIA [None]
